FAERS Safety Report 8492727-X (Version None)
Quarter: 2012Q2

REPORT INFORMATION
  Report Type: 
  Country: None (occurrence: None)
  Receive Date: 20120629
  Receipt Date: 20120629
  Transmission Date: 20120825
  Serious: Yes (Disabling, Other)
  Sender: FDA-Public Use
  Company Number: None

PATIENT
  Age: 53 Year
  Sex: Female
  Weight: 59.8748 kg

DRUGS (1)
  1. CAMBIA [Suspect]
     Indication: MIGRAINE
     Dosage: 50MG ONCE AS NEEDED PO THREE USES
     Route: 048
     Dates: start: 20120607, end: 20120624

REACTIONS (6)
  - MELAENA [None]
  - VISION BLURRED [None]
  - INTESTINAL HAEMORRHAGE [None]
  - DIARRHOEA [None]
  - ABDOMINAL PAIN [None]
  - NAUSEA [None]
